FAERS Safety Report 23198622 (Version 1)
Quarter: 2023Q4

REPORT INFORMATION
  Report Type: Spontaneous
  Country: DE (occurrence: DE)
  Receive Date: 20231117
  Receipt Date: 20231117
  Transmission Date: 20240109
  Serious: Yes (Life-Threatening, Hospitalization, Other)
  Sender: FDA-Public Use
  Company Number: None

PATIENT
  Age: 52 Year
  Sex: Male
  Weight: 82 kg

DRUGS (13)
  1. PAXLOVID [Interacting]
     Active Substance: NIRMATRELVIR\RITONAVIR
     Indication: COVID-19 treatment
     Dosage: 1-0-1 (150/100 MG)
     Dates: start: 20231013, end: 20231015
  2. PROGRAF [Interacting]
     Active Substance: TACROLIMUS
     Indication: Renal transplant
     Dosage: FREQ:.5 D;2,5 MG-0-2,5MG
  3. ATORVASTATIN [Concomitant]
     Active Substance: ATORVASTATIN
     Dosage: 0-0-1
  4. ASPIRIN [Concomitant]
     Active Substance: ASPIRIN
     Dosage: 1-0-0
  5. SODIUM BICARBONATE [Concomitant]
     Active Substance: SODIUM BICARBONATE
     Dosage: FREQ:8 H;1-1-1
  6. RAMIPRIL [Concomitant]
     Active Substance: RAMIPRIL
     Dosage: FREQ:.5 D;1-0-1
  7. TORSEMIDE [Concomitant]
     Active Substance: TORSEMIDE
     Dosage: 1-0-0
  8. PREDNISOLONE [Concomitant]
     Active Substance: PREDNISOLONE
     Indication: Renal transplant
     Dosage: 1-0-0
  9. CERTICAN [Concomitant]
     Active Substance: EVEROLIMUS
     Indication: Renal transplant
     Dosage: 1,50-0-1,75 MG
  10. LERCANIDIPINE [Concomitant]
     Active Substance: LERCANIDIPINE
  11. METOPROLOL [Concomitant]
     Active Substance: METOPROLOL
     Dosage: FREQ:.5 D;1-0-1
  12. MAGNESIUM [Concomitant]
     Active Substance: MAGNESIUM
     Dosage: 1-0-0
  13. CHOLECALCIFEROL [Concomitant]
     Active Substance: CHOLECALCIFEROL
     Dosage: 20.000 I.E. EVERY SUNDAY

REACTIONS (11)
  - Drug interaction [Recovered/Resolved]
  - Overdose [Recovered/Resolved]
  - Blood creatinine increased [Recovering/Resolving]
  - Enzyme inhibition [Recovered/Resolved]
  - Renal transplant failure [Recovering/Resolving]
  - Immunosuppressant drug level increased [Recovered/Resolved]
  - Diarrhoea [Recovered/Resolved]
  - Vomiting [Recovered/Resolved]
  - Malaise [Recovered/Resolved]
  - Dysgeusia [Recovered/Resolved]
  - Abnormal faeces [Recovered/Resolved]

NARRATIVE: CASE EVENT DATE: 20231001
